FAERS Safety Report 5732490-6 (Version None)
Quarter: 2008Q2

REPORT INFORMATION
  Report Type: 
  Country: None (occurrence: None)
  Receive Date: 20080508
  Receipt Date: 20080425
  Transmission Date: 20081010
  Serious: Yes (Death, Hospitalization)
  Sender: FDA-Public Use
  Company Number: DE-GENENTECH-259268

PATIENT
  Sex: Male

DRUGS (8)
  1. BEVACIZUMAB [Suspect]
     Indication: COLORECTAL CANCER METASTATIC
     Dosage: 487.5 MG, UNK
     Route: 042
     Dates: start: 20070725, end: 20080407
  2. IRINOTECAN HCL [Suspect]
     Indication: COLORECTAL CANCER METASTATIC
     Dosage: 150 MG, 1/WEEK
     Route: 042
     Dates: start: 20070717, end: 20080407
  3. FLUOROURACIL [Suspect]
     Indication: COLORECTAL CANCER METASTATIC
     Dosage: 3800 MG, UNK
     Route: 042
     Dates: start: 20070717, end: 20080407
  4. FOLINSYRE [Suspect]
     Indication: COLORECTAL CANCER METASTATIC
     Dosage: 950 MG, UNK
     Route: 042
     Dates: start: 20070717, end: 20080407
  5. DEXAMETHASONE [Concomitant]
     Indication: DRUG USE FOR UNKNOWN INDICATION
     Dates: start: 20080402, end: 20080402
  6. 5-HT3 RECEPTOR ANTAGONIST NOS [Concomitant]
     Indication: DRUG USE FOR UNKNOWN INDICATION
     Dates: start: 20080402, end: 20080402
  7. ENALAPRIL MALEATE [Concomitant]
     Indication: DRUG USE FOR UNKNOWN INDICATION
     Dates: start: 20061031
  8. TRAMADOL HCL [Concomitant]
     Indication: DRUG USE FOR UNKNOWN INDICATION
     Dosage: 100 MG, UNK

REACTIONS (2)
  - CEREBROVASCULAR ACCIDENT [None]
  - PERITONITIS [None]
